FAERS Safety Report 10899011 (Version 1)
Quarter: 2015Q1

REPORT INFORMATION
  Report Type: Not Available
  Country: CA (occurrence: CA)
  Receive Date: 20150309
  Receipt Date: 20150309
  Transmission Date: 20150721
  Serious: Yes (Other)
  Sender: FDA-Public Use
  Company Number: CA-MUNDIPHARMA DS AND PHARMACOVIGILANCE-CAN-2015-0005617

PATIENT
  Sex: Male

DRUGS (1)
  1. OXYCODONE [Suspect]
     Active Substance: OXYCODONE
     Indication: PAIN
     Dosage: UNK
     Route: 065

REACTIONS (6)
  - Coordination abnormal [Unknown]
  - Euphoric mood [Unknown]
  - Headache [Unknown]
  - Derealisation [Unknown]
  - Impulse-control disorder [Unknown]
  - Irritability [Unknown]
